FAERS Safety Report 8290835 (Version 2)
Quarter: 2013Q2

REPORT INFORMATION
  Report Type: Spontaneous
  Country: US (occurrence: None)
  Receive Date: 20111122
  Receipt Date: 20120426
  Transmission Date: 20140414
  Serious: No
  Sender: FDA-Public Use
  Company Number: PHEH2011US02053

PATIENT
  Age: 63 Year
  Sex: Female
  Weight: 93.4 kg

DRUGS (8)
  1. GILENYA [Suspect]
     Indication: RELAPSING-REMITTING MULTIPLE SCLEROSIS
     Dosage: 0.5 MG, DAILY, ORAL
     Route: 048
     Dates: start: 20110809
  2. SINGULAIR (MONTELUKAST) 10MG [Concomitant]
  3. TOPROL XL (METOPROLOL SUCCINATE) (100 MILLIGRAM) (METOPROLOL SUCCINATE) [Concomitant]
  4. LASIX (FUROSEMIDE) [Concomitant]
  5. BUSPAR (BUSPIRONE HYDROCHLORIDE) [Concomitant]
  6. CELEXA (CITALOPRAM HYDROBROMIDE) [Concomitant]
  7. NAPROXEN (NAPROXEN) [Concomitant]
  8. ULTRAM (TRAMADOL HYDROCHLORIDE) [Concomitant]

REACTIONS (2)
  - CHEST DISCOMFORT [None]
  - Chest discomfort [None]
